FAERS Safety Report 4839959-7 (Version None)
Quarter: 2005Q4

REPORT INFORMATION
  Report Type: 
  Country: None (occurrence: None)
  Receive Date: 20051125
  Receipt Date: 20051118
  Transmission Date: 20060501
  Serious: Yes (Other)
  Sender: FDA-Public Use
  Company Number: 2005-11-1195

PATIENT
  Age: 84 Year
  Sex: Male

DRUGS (1)
  1. CELESTAMINE TAB [Suspect]
     Indication: ARTHROPOD BITE
     Dosage: ORAL
     Route: 048

REACTIONS (1)
  - DEMENTIA ALZHEIMER'S TYPE [None]
